FAERS Safety Report 8158972-8 (Version None)
Quarter: 2012Q1

REPORT INFORMATION
  Report Type: 
  Country: None (occurrence: None)
  Receive Date: 20120223
  Receipt Date: 20120221
  Transmission Date: 20120608
  Serious: No
  Sender: FDA-Public Use
  Company Number: US-PFIZER INC-2012046242

PATIENT
  Sex: Male
  Weight: 99.8 kg

DRUGS (2)
  1. CHANTIX [Suspect]
     Indication: SMOKING CESSATION THERAPY
     Dosage: 0.5 MG, 1X/DAY
     Route: 048
     Dates: start: 20111101, end: 20111101
  2. CHANTIX [Suspect]
     Dosage: UNK
     Route: 048
     Dates: start: 20111101, end: 20120219

REACTIONS (3)
  - GASTROINTESTINAL DISORDER [None]
  - MOOD ALTERED [None]
  - ABNORMAL DREAMS [None]
